FAERS Safety Report 4767446-3 (Version None)
Quarter: 2005Q3

REPORT INFORMATION
  Report Type: 
  Country: None (occurrence: None)
  Receive Date: 20050913
  Receipt Date: 20050902
  Transmission Date: 20060218
  Serious: Yes (Hospitalization)
  Sender: FDA-Public Use
  Company Number: PHBS2005US12929

PATIENT
  Age: 77 Year
  Sex: Male

DRUGS (1)
  1. METOPROLOL [Suspect]
     Indication: HYPERTENSION

REACTIONS (6)
  - BLOOD GLUCOSE INCREASED [None]
  - BLOOD UREA INCREASED [None]
  - COUGH [None]
  - HEART RATE INCREASED [None]
  - SUPRAVENTRICULAR TACHYCARDIA [None]
  - VENTRICULAR HYPERTROPHY [None]
